FAERS Safety Report 17645856 (Version 16)
Quarter: 2022Q4

REPORT INFORMATION
  Report Type: Report from Study
  Country: US (occurrence: US)
  Receive Date: 20200408
  Receipt Date: 20221213
  Transmission Date: 20230113
  Serious: No
  Sender: FDA-Public Use
  Company Number: NVSC2020US091669

PATIENT
  Age: 39 Year
  Sex: Female

DRUGS (2)
  1. ILARIS [Suspect]
     Active Substance: CANAKINUMAB
     Indication: Cryopyrin associated periodic syndrome
     Dosage: 150 MG, QMO
     Route: 058
     Dates: start: 20191029
  2. ILARIS [Suspect]
     Active Substance: CANAKINUMAB
     Dosage: 150 MG, EVERY 4 WEEKS
     Route: 058
     Dates: start: 20191216

REACTIONS (23)
  - Arthropathy [Unknown]
  - Malaise [Recovering/Resolving]
  - Eye irritation [Unknown]
  - Pain [Recovered/Resolved]
  - Pain [Unknown]
  - Rash [Unknown]
  - Vision blurred [Unknown]
  - Hypoaesthesia [Unknown]
  - Ocular hyperaemia [Unknown]
  - Paraesthesia [Unknown]
  - Pain in extremity [Unknown]
  - Cheilitis [Recovering/Resolving]
  - Back pain [Unknown]
  - Dizziness [Unknown]
  - Abdominal pain upper [Unknown]
  - Nausea [Unknown]
  - Gastroenteritis viral [Unknown]
  - Lip pain [Unknown]
  - Oral pain [Unknown]
  - Suspected COVID-19 [Unknown]
  - Product use issue [Unknown]
  - Inappropriate schedule of product administration [Unknown]
  - Therapeutic response shortened [Unknown]

NARRATIVE: CASE EVENT DATE: 20210825
